FAERS Safety Report 11619782 (Version 2)
Quarter: 2015Q4

REPORT INFORMATION
  Report Type: Spontaneous
  Country: FR (occurrence: FR)
  Receive Date: 20151012
  Receipt Date: 20151204
  Transmission Date: 20160304
  Serious: Yes (Other)
  Sender: FDA-Public Use
  Company Number: FR-JNJFOC-20151000384

PATIENT
  Age: 52 Year
  Sex: Female

DRUGS (3)
  1. YONDELIS [Suspect]
     Active Substance: TRABECTEDIN
     Indication: OVARIAN EPITHELIAL CANCER
     Route: 065
  2. YONDELIS [Suspect]
     Active Substance: TRABECTEDIN
     Indication: OVARIAN EPITHELIAL CANCER
     Route: 065
     Dates: start: 201401, end: 201506
  3. CAELYX [Suspect]
     Active Substance: DOXORUBICIN HYDROCHLORIDE
     Indication: OVARIAN EPITHELIAL CANCER
     Route: 065
     Dates: start: 201401, end: 201506

REACTIONS (4)
  - Thrombocytopenia [Unknown]
  - Febrile neutropenia [Unknown]
  - Hepatotoxicity [Unknown]
  - Anaemia [Unknown]
